FAERS Safety Report 8301099-2 (Version None)
Quarter: 2012Q2

REPORT INFORMATION
  Report Type: 
  Country: None (occurrence: None)
  Receive Date: 20120420
  Receipt Date: 20120410
  Transmission Date: 20120825
  Serious: Yes (Other)
  Sender: FDA-Public Use
  Company Number: SA-JNJFOC-20120404884

PATIENT
  Age: 35 Year
  Sex: Female
  Weight: 50 kg

DRUGS (2)
  1. STEROIDS NOS [Concomitant]
     Indication: COLITIS ULCERATIVE
     Dosage: 6 MONTHS AGO
     Route: 065
  2. INFLIXIMAB, RECOMBINANT [Suspect]
     Indication: COLITIS ULCERATIVE
     Route: 042
     Dates: start: 20120310, end: 20120410

REACTIONS (1)
  - BRONCHIAL ULCERATION [None]
